FAERS Safety Report 6329771-4 (Version None)
Quarter: 2009Q3

REPORT INFORMATION
  Report Type: 
  Country: None (occurrence: None)
  Receive Date: 20090826
  Receipt Date: 20090817
  Transmission Date: 20100115
  Serious: Yes (Other)
  Sender: FDA-Public Use
  Company Number: PHBS2006JP02552

PATIENT
  Sex: Male
  Weight: 49 kg

DRUGS (7)
  1. AREDIA [Suspect]
     Indication: HYPERCALCAEMIA
     Dosage: 45 MG EVERY 2 WEEKS
     Route: 042
     Dates: start: 20030327, end: 20060119
  2. THALIDOMIDE [Suspect]
     Dosage: 200 MG/DAY
     Route: 048
     Dates: start: 20031126
  3. THALIDOMIDE [Suspect]
     Dosage: 100 MG/D
     Route: 048
     Dates: start: 20031201
  4. DEXAMETHASONE [Suspect]
     Dosage: 20 MG, QID
     Route: 048
     Dates: start: 20031126
  5. MELPHALAN HYDROCHLORIDE [Concomitant]
     Dosage: 8 MG/DAY
     Route: 048
     Dates: start: 20020226, end: 20031031
  6. PREDONINE [Concomitant]
     Dosage: 40 MG/DAY
     Route: 048
     Dates: start: 20020226, end: 20031031
  7. SUCRALFATE [Concomitant]
     Dosage: 3 G/DAY
     Route: 048
     Dates: start: 20020226, end: 20031031

REACTIONS (20)
  - BACK PAIN [None]
  - BLOOD CREATININE INCREASED [None]
  - COMPRESSION FRACTURE [None]
  - DEBRIDEMENT [None]
  - DENTAL OPERATION [None]
  - FISTULA [None]
  - HAEMOGLOBIN DECREASED [None]
  - MALIGNANT NEOPLASM PROGRESSION [None]
  - MONOCYTE COUNT INCREASED [None]
  - MYELITIS [None]
  - ORAL PAIN [None]
  - OSTEONECROSIS [None]
  - PERIODONTITIS [None]
  - PLATELET COUNT DECREASED [None]
  - PRIMARY SEQUESTRUM [None]
  - PURULENT DISCHARGE [None]
  - RESORPTION BONE INCREASED [None]
  - TOOTH ABSCESS [None]
  - TOOTH EXTRACTION [None]
  - WHITE BLOOD CELL COUNT DECREASED [None]
